FAERS Safety Report 22344939 (Version 1)
Quarter: 2023Q2

REPORT INFORMATION
  Report Type: Report from Study
  Country: DE (occurrence: DE)
  Receive Date: 20230519
  Receipt Date: 20230519
  Transmission Date: 20230721
  Serious: Yes (Hospitalization)
  Sender: FDA-Public Use
  Company Number: DE-JNJFOC-20230546096

PATIENT
  Age: 17 Year

DRUGS (2)
  1. RISPERDAL [Interacting]
     Active Substance: RISPERIDONE
     Indication: Product used for unknown indication
     Dosage: NA
     Route: 065
  2. PIPAMPERONE [Interacting]
     Active Substance: PIPAMPERONE
     Indication: Product used for unknown indication
     Dosage: NA
     Route: 065

REACTIONS (2)
  - Drug interaction [Unknown]
  - Hepatic enzyme increased [Unknown]
